FAERS Safety Report 9245163 (Version 1)
Quarter: 2013Q2

REPORT INFORMATION
  Report Type: Spontaneous
  Country: JP (occurrence: JP)
  Receive Date: 20130422
  Receipt Date: 20130422
  Transmission Date: 20140414
  Serious: Yes (Other)
  Sender: FDA-Public Use
  Company Number: JP-PFIZER INC-2013121511

PATIENT
  Sex: 0

DRUGS (1)
  1. GENOTROPIN TC [Suspect]
     Indication: PRADER-WILLI SYNDROME

REACTIONS (2)
  - Obesity [Unknown]
  - Condition aggravated [Unknown]
